FAERS Safety Report 8513283-3 (Version None)
Quarter: 2012Q3

REPORT INFORMATION
  Report Type: 
  Country: None (occurrence: None)
  Receive Date: 20120716
  Receipt Date: 20120711
  Transmission Date: 20120928
  Serious: Yes (Other)
  Sender: FDA-Public Use
  Company Number: GB-ROCHE-1087111

PATIENT
  Age: 71 Year
  Sex: Male

DRUGS (4)
  1. RAMIPRIL [Concomitant]
  2. SIMVASTATIN [Concomitant]
  3. LUCENTIS [Suspect]
     Indication: MACULAR DEGENERATION
     Route: 050
     Dates: start: 20120608
  4. ASPIRIN [Concomitant]

REACTIONS (1)
  - OCULAR ISCHAEMIC SYNDROME [None]
